FAERS Safety Report 13195142 (Version 16)
Quarter: 2020Q2

REPORT INFORMATION
  Report Type: Spontaneous
  Country: CA (occurrence: CA)
  Receive Date: 20170207
  Receipt Date: 20200407
  Transmission Date: 20200713
  Serious: Yes (Hospitalization, Other)
  Sender: FDA-Public Use
  Company Number: CA-ROCHE-1890133

PATIENT
  Age: 63 Year
  Sex: Female

DRUGS (14)
  1. XOLAIR [Suspect]
     Active Substance: OMALIZUMAB
     Indication: ASTHMA
     Route: 058
     Dates: start: 20150211
  2. HIZENTRA [Concomitant]
     Active Substance: HUMAN IMMUNOGLOBULIN G
     Indication: PRODUCT USED FOR UNKNOWN INDICATION
     Dosage: UNK
     Route: 065
  3. XOLAIR [Suspect]
     Active Substance: OMALIZUMAB
     Route: 058
     Dates: start: 20170328
  4. XOLAIR [Suspect]
     Active Substance: OMALIZUMAB
     Route: 058
     Dates: start: 20171109
  5. XOLAIR [Suspect]
     Active Substance: OMALIZUMAB
     Route: 058
     Dates: start: 20181011
  6. XOLAIR [Suspect]
     Active Substance: OMALIZUMAB
     Route: 058
     Dates: start: 20190920
  7. XOLAIR [Suspect]
     Active Substance: OMALIZUMAB
     Route: 058
     Dates: start: 20170105
  8. XOLAIR [Suspect]
     Active Substance: OMALIZUMAB
     Route: 058
     Dates: start: 20180622
  9. XOLAIR [Suspect]
     Active Substance: OMALIZUMAB
     Route: 058
     Dates: start: 20170130
  10. XOLAIR [Suspect]
     Active Substance: OMALIZUMAB
     Route: 058
     Dates: start: 20190212
  11. XOLAIR [Suspect]
     Active Substance: OMALIZUMAB
     Route: 058
     Dates: start: 20181205
  12. XOLAIR [Suspect]
     Active Substance: OMALIZUMAB
     Route: 058
     Dates: start: 20190826
  13. XOLAIR [Suspect]
     Active Substance: OMALIZUMAB
     Route: 058
     Dates: start: 20200110
  14. XOLAIR [Suspect]
     Active Substance: OMALIZUMAB
     Route: 058
     Dates: start: 20170228

REACTIONS (23)
  - Dyspnoea [Unknown]
  - Flatulence [Unknown]
  - Pulmonary mass [Not Recovered/Not Resolved]
  - Forced expiratory volume decreased [Unknown]
  - Lung hyperinflation [Unknown]
  - Nasopharyngitis [Unknown]
  - Heart rate decreased [Recovering/Resolving]
  - Cellulitis [Recovering/Resolving]
  - Pyrexia [Unknown]
  - Dysphonia [Recovering/Resolving]
  - Fall [Unknown]
  - Cough [Unknown]
  - Bronchial secretion retention [Not Recovered/Not Resolved]
  - Asthma [Unknown]
  - Body temperature decreased [Unknown]
  - Respiratory disorder [Unknown]
  - Wheezing [Unknown]
  - Oropharyngeal pain [Unknown]
  - Productive cough [Unknown]
  - Malaise [Unknown]
  - Upper respiratory tract infection [Unknown]
  - Wrist fracture [Recovering/Resolving]
  - Blood pressure systolic increased [Not Recovered/Not Resolved]

NARRATIVE: CASE EVENT DATE: 201508
